FAERS Safety Report 21670353 (Version 2)
Quarter: 2022Q4

REPORT INFORMATION
  Report Type: Report from Study
  Country: DK (occurrence: DK)
  Receive Date: 20221201
  Receipt Date: 20221214
  Transmission Date: 20230112
  Serious: Yes (Death)
  Sender: FDA-Public Use
  Company Number: DK-TEVA-2022-DK-2830860

PATIENT
  Sex: Male

DRUGS (3)
  1. PREDNISOLONE [Suspect]
     Active Substance: PREDNISOLONE
     Indication: VEXAS syndrome
     Dosage: INITIAL DOSE NOT STATED. LATER, TAPERING OF PREDNISOLONE BELOW 15 MG/DAY WAS NOT POSSIBLE WITHOUT...
     Route: 065
  2. HUMAN IMMUNOGLOBULIN G [Suspect]
     Active Substance: HUMAN IMMUNOGLOBULIN G
     Indication: VEXAS syndrome
     Dosage: 5 DAYS EVERY 4 WEEKS
     Route: 042
  3. SECUKINUMAB [Suspect]
     Active Substance: SECUKINUMAB
     Indication: VEXAS syndrome
     Dosage: 300 MG/4 WEEKS
     Route: 065

REACTIONS (3)
  - Rebound effect [Fatal]
  - Drug ineffective [Fatal]
  - Cardiac failure [Fatal]
